FAERS Safety Report 21974706 (Version 1)
Quarter: 2023Q1

REPORT INFORMATION
  Report Type: Spontaneous
  Country: US (occurrence: None)
  Receive Date: 20230208
  Receipt Date: 20230208
  Transmission Date: 20230418
  Serious: Yes (Hospitalization)
  Sender: FDA-Public Use
  Company Number: None

PATIENT
  Age: 48 Year
  Sex: Male

DRUGS (1)
  1. RYDAPT [Suspect]
     Active Substance: MIDOSTAURIN
     Indication: Acute myeloid leukaemia
     Dosage: FREQUENCY : TWICE A DAY;?
     Route: 048
     Dates: start: 20221015

REACTIONS (5)
  - Platelet count decreased [None]
  - Febrile neutropenia [None]
  - Klebsiella test positive [None]
  - Clostridium test positive [None]
  - Therapy interrupted [None]

NARRATIVE: CASE EVENT DATE: 20230119
